FAERS Safety Report 23909886 (Version 11)
Quarter: 2025Q2

REPORT INFORMATION
  Report Type: Report from Study
  Country: GB (occurrence: GB)
  Receive Date: 20240528
  Receipt Date: 20250609
  Transmission Date: 20250716
  Serious: Yes (Life-Threatening, Hospitalization, Other)
  Sender: AMGEN
  Company Number: GB-Vifor (International) Inc.-VIT-2024-04330

PATIENT
  Age: 27 Year
  Sex: Female
  Weight: 126 kg

DRUGS (49)
  1. AVACOPAN [Suspect]
     Active Substance: AVACOPAN
     Indication: Anti-neutrophil cytoplasmic antibody positive vasculitis
     Dosage: 30 MG, BID
     Route: 048
     Dates: start: 20240220, end: 20240507
  2. AVACOPAN [Suspect]
     Active Substance: AVACOPAN
     Dosage: 30 MG, BID
     Route: 048
     Dates: start: 20240531
  3. PREDNISOLONE [Concomitant]
     Active Substance: PREDNISOLONE
     Indication: Anti-neutrophil cytoplasmic antibody positive vasculitis
     Dosage: 20 MG, QD
     Route: 048
     Dates: start: 20240221, end: 20240305
  4. PREDNISOLONE [Concomitant]
     Active Substance: PREDNISOLONE
     Dosage: 40 MG, OD
     Route: 048
     Dates: start: 20240306, end: 20240322
  5. PREDNISOLONE [Concomitant]
     Active Substance: PREDNISOLONE
     Dosage: 30 MG, OD
     Route: 048
     Dates: start: 20240323, end: 202404
  6. PREDNISOLONE [Concomitant]
     Active Substance: PREDNISOLONE
     Dosage: 40 MG, OD
     Route: 048
     Dates: start: 20240506, end: 20240531
  7. PREDNISOLONE [Concomitant]
     Active Substance: PREDNISOLONE
     Dosage: 30 MG, OD, COMPLETION OF PLANNED COURSE
     Route: 048
     Dates: start: 20240531, end: 20240607
  8. PREDNISOLONE [Concomitant]
     Active Substance: PREDNISOLONE
     Dosage: 20 MG, OD, COMPLETION OF PLANNED COURSE
     Route: 048
     Dates: start: 20240608, end: 20240628
  9. PREDNISOLONE [Concomitant]
     Active Substance: PREDNISOLONE
     Dosage: 15 MG, OD, COMPLETION OF PLANNED COURSE
     Route: 048
     Dates: start: 20240629, end: 20240705
  10. PREDNISOLONE [Concomitant]
     Active Substance: PREDNISOLONE
     Dosage: 10 MG, OD, COMPLETION OF PLANNED COURSE
     Route: 048
     Dates: start: 20240706, end: 20240923
  11. PREDNISOLONE [Concomitant]
     Active Substance: PREDNISOLONE
     Dosage: 9 MG, OD, COMPLETION OF PLANNED COURSE
     Route: 048
     Dates: start: 20240924, end: 20240930
  12. PREDNISOLONE [Concomitant]
     Active Substance: PREDNISOLONE
     Dosage: 8 MG, OD, COMPLETION OF PLANNED COURSE
     Route: 048
     Dates: start: 20241001, end: 20241007
  13. PREDNISOLONE [Concomitant]
     Active Substance: PREDNISOLONE
     Dosage: 7 MG, OD, COMPLETION OF PLANNED COURSE
     Route: 048
     Dates: start: 20241008, end: 20241014
  14. PREDNISOLONE [Concomitant]
     Active Substance: PREDNISOLONE
     Dosage: 6 MG, OD, COMPLETION OF PLANNED COURSE
     Route: 048
     Dates: start: 20241015, end: 20241021
  15. PREDNISOLONE [Concomitant]
     Active Substance: PREDNISOLONE
     Dosage: 5 MG, OD, COMPLETION OF PLANNED COURSE
     Route: 048
     Dates: start: 20241022, end: 20241028
  16. PREDNISOLONE [Concomitant]
     Active Substance: PREDNISOLONE
     Dosage: 4 MG, OD, COMPLETION OF PLANNED COURSE
     Route: 048
     Dates: start: 20241029, end: 20241104
  17. PREDNISOLONE [Concomitant]
     Active Substance: PREDNISOLONE
     Dosage: 3 MG, OD, COMPLETION OF PLANNED COURSE
     Route: 048
     Dates: start: 20241105, end: 20241111
  18. PREDNISOLONE [Concomitant]
     Active Substance: PREDNISOLONE
     Dosage: 2 MG, OD, COMPLETION OF PLANNED COURSE
     Route: 048
     Dates: start: 20241112, end: 20241118
  19. PREDNISOLONE [Concomitant]
     Active Substance: PREDNISOLONE
     Dosage: 1 MG, OD, COMPLETION OF PLANNED COURSE
     Route: 048
     Dates: start: 20241119, end: 20241122
  20. PREDNISOLONE [Concomitant]
     Active Substance: PREDNISOLONE
     Dosage: 20 MG, OD
     Route: 048
     Dates: start: 20241213, end: 20250106
  21. PREDNISOLONE [Concomitant]
     Active Substance: PREDNISOLONE
     Dosage: 15 MG, OD
     Route: 048
     Dates: start: 20250107, end: 202501
  22. PREDNISOLONE [Concomitant]
     Active Substance: PREDNISOLONE
     Dosage: 20 MG, OD
     Route: 048
     Dates: start: 20250131, end: 20250211
  23. PREDNISOLONE [Concomitant]
     Active Substance: PREDNISOLONE
     Dosage: 10 MG, OD, COMPLETION OF PLANNED COURSE
     Route: 048
     Dates: start: 20250212
  24. METHYLPREDNISOLONE [Concomitant]
     Active Substance: METHYLPREDNISOLONE
     Indication: Anti-neutrophil cytoplasmic antibody positive vasculitis
     Route: 040
     Dates: start: 20240220, end: 20240220
  25. METHYLPREDNISOLONE [Concomitant]
     Active Substance: METHYLPREDNISOLONE
     Route: 040
     Dates: start: 20240329, end: 20240329
  26. METHYLPREDNISOLONE [Concomitant]
     Active Substance: METHYLPREDNISOLONE
     Dosage: 1 G, OD
     Route: 040
     Dates: start: 20240502, end: 20240503
  27. METHYLPREDNISOLONE [Concomitant]
     Active Substance: METHYLPREDNISOLONE
     Route: 040
     Dates: start: 20240504, end: 20240504
  28. METHYLPREDNISOLONE [Concomitant]
     Active Substance: METHYLPREDNISOLONE
     Route: 040
     Dates: start: 20250306, end: 20250306
  29. AMLODIPINE [Concomitant]
     Active Substance: AMLODIPINE BESYLATE
     Indication: Hypertension
     Dosage: 10,MG,QD
     Route: 048
     Dates: start: 20220908
  30. CALCIUM CARBONATE\CHOLECALCIFEROL [Concomitant]
     Active Substance: CALCIUM CARBONATE\CHOLECALCIFEROL
     Indication: Prophylaxis
     Route: 048
     Dates: start: 20230328
  31. COTRIMOXAZOLE [Concomitant]
     Active Substance: SULFAMETHOXAZOLE\TRIMETHOPRIM
     Indication: Prophylaxis
     Dosage: STRENGTH: 80MG+400MG
     Route: 048
     Dates: start: 20230329
  32. MEPTAZINOL HYDROCHLORIDE [Concomitant]
     Active Substance: MEPTAZINOL HYDROCHLORIDE
     Indication: Analgesic therapy
     Dosage: 200,MG,TID
     Route: 048
     Dates: start: 20240305
  33. OMEPRAZOLE [Concomitant]
     Active Substance: OMEPRAZOLE
     Indication: Prophylaxis
     Dosage: 20,MG,QD
     Route: 048
     Dates: start: 20230328
  34. RAMIPRIL [Concomitant]
     Active Substance: RAMIPRIL
     Indication: Hypertension
     Dosage: 10,MG,QD
     Route: 048
     Dates: start: 20230328
  35. RITUXIMAB [Concomitant]
     Active Substance: RITUXIMAB
     Indication: Anti-neutrophil cytoplasmic antibody positive vasculitis
     Route: 040
     Dates: start: 20240314, end: 20240314
  36. RITUXIMAB [Concomitant]
     Active Substance: RITUXIMAB
     Route: 040
     Dates: start: 20240329, end: 20240329
  37. CLARITHROMYCIN [Concomitant]
     Active Substance: CLARITHROMYCIN
     Indication: Cough
     Dosage: 500,MG,BID, COMPLETION OF PLANNED COURSE
     Route: 048
     Dates: start: 20240320, end: 2024
  38. CLARITHROMYCIN [Concomitant]
     Active Substance: CLARITHROMYCIN
     Indication: Dyspnoea
  39. DALTEPARIN [Concomitant]
     Active Substance: DALTEPARIN
     Indication: Prophylaxis
     Route: 058
     Dates: start: 20240505, end: 20240513
  40. DESOGESTREL [Concomitant]
     Active Substance: DESOGESTREL
     Indication: Contraceptive implant
     Dosage: 75 MUG, OD
     Route: 048
     Dates: start: 20230728
  41. PIPERACILLIN SODIUM\TAZOBACTAM SODIUM [Concomitant]
     Active Substance: PIPERACILLIN SODIUM\TAZOBACTAM SODIUM
     Indication: Lower respiratory tract infection
     Dosage: 4.5 G, TID
     Route: 040
     Dates: start: 202404, end: 20240513
  42. PIPERACILLIN SODIUM\TAZOBACTAM SODIUM [Concomitant]
     Active Substance: PIPERACILLIN SODIUM\TAZOBACTAM SODIUM
     Route: 065
  43. AMBISOME [Concomitant]
     Active Substance: AMPHOTERICIN B
     Indication: Fungal infection
     Dosage: 250 MG, OD, COMPLETION OF PLANNED COURSE
     Route: 040
     Dates: start: 20240426, end: 202405
  44. AMOXICILLIN\CLAVULANATE POTASSIUM [Concomitant]
     Active Substance: AMOXICILLIN\CLAVULANATE POTASSIUM
     Indication: Cough
     Dosage: 625 MG, TID, COMPLETION OF PLANNED COURSE
     Route: 048
     Dates: start: 20240320, end: 2024
  45. AMOXICILLIN\CLAVULANATE POTASSIUM [Concomitant]
     Active Substance: AMOXICILLIN\CLAVULANATE POTASSIUM
     Indication: Dyspnoea
  46. CYCLOPHOSPHAMIDE [Concomitant]
     Active Substance: CYCLOPHOSPHAMIDE
     Indication: Anti-neutrophil cytoplasmic antibody positive vasculitis
     Route: 040
     Dates: start: 20240621, end: 20240719
  47. CYCLOPHOSPHAMIDE [Concomitant]
     Active Substance: CYCLOPHOSPHAMIDE
     Route: 040
     Dates: start: 20250221, end: 20250307
  48. OBINUTUZUMAB [Concomitant]
     Active Substance: OBINUTUZUMAB
     Indication: Anti-neutrophil cytoplasmic antibody positive vasculitis
     Route: 040
     Dates: start: 20250306, end: 20250306
  49. HYDROCORTISONE [Concomitant]
     Active Substance: HYDROCORTISONE
     Indication: Anti-neutrophil cytoplasmic antibody positive vasculitis
     Route: 040
     Dates: start: 20250219, end: 20250219

REACTIONS (17)
  - Pulmonary cavitation [Recovered/Resolved]
  - Pulmonary vasculitis [Recovered/Resolved]
  - Vasculitis [Not Recovered/Not Resolved]
  - Vasculitis [Recovered/Resolved]
  - Metapneumovirus infection [Recovered/Resolved]
  - Candida infection [Recovered/Resolved]
  - Cytomegalovirus infection [Recovering/Resolving]
  - Lower respiratory tract infection [Recovered/Resolved]
  - Lower respiratory tract infection [Not Recovered/Not Resolved]
  - Pneumonia [Recovered/Resolved]
  - Pneumothorax [Recovered/Resolved]
  - Infectious pleural effusion [Recovered/Resolved]
  - Deep vein thrombosis [Recovering/Resolving]
  - Iron deficiency anaemia [Recovered/Resolved]
  - Tachycardia [Recovered/Resolved]
  - Sinusitis [Recovered/Resolved]
  - Headache [Recovering/Resolving]

NARRATIVE: CASE EVENT DATE: 20240322
